FAERS Safety Report 6037348-3 (Version None)
Quarter: 2009Q1

REPORT INFORMATION
  Report Type: 
  Country: None (occurrence: None)
  Receive Date: 20090114
  Receipt Date: 20090105
  Transmission Date: 20090719
  Serious: Yes (Other)
  Sender: FDA-Public Use
  Company Number: US-ABBOTT-09P-163-0495962-00

PATIENT
  Sex: Female
  Weight: 143.01 kg

DRUGS (3)
  1. HUMIRA [Suspect]
     Indication: PSORIATIC ARTHROPATHY
     Dates: start: 20071226, end: 20080704
  2. HUMIRA [Suspect]
     Indication: PSORIASIS
  3. SYNTHROID [Suspect]
     Indication: THYROIDECTOMY
     Dates: start: 20081101

REACTIONS (9)
  - APNOEA [None]
  - ASTHMA LATE ONSET [None]
  - COUGH [None]
  - DYSPNOEA [None]
  - LEFT VENTRICULAR DYSFUNCTION [None]
  - MALAISE [None]
  - OXYGEN SATURATION DECREASED [None]
  - PULMONARY HYPERTENSION [None]
  - THYROID NEOPLASM [None]
